FAERS Safety Report 18306293 (Version 1)
Quarter: 2020Q3

REPORT INFORMATION
  Report Type: Spontaneous
  Country: US (occurrence: US)
  Receive Date: 20200924
  Receipt Date: 20200924
  Transmission Date: 20201103
  Serious: Yes (Hospitalization)
  Sender: FDA-Public Use
  Company Number: None

PATIENT
  Age: 76 Year
  Sex: Female
  Weight: 80 kg

DRUGS (1)
  1. REMDESIVIR. [Suspect]
     Active Substance: REMDESIVIR
     Indication: COVID-19
     Route: 040
     Dates: start: 20200915, end: 20200917

REACTIONS (5)
  - Renal failure [None]
  - Liver function test increased [None]
  - Blood creatinine increased [None]
  - Urine output decreased [None]
  - Haemodialysis [None]

NARRATIVE: CASE EVENT DATE: 20200917
